FAERS Safety Report 9801790 (Version 1)
Quarter: 2014Q1

REPORT INFORMATION
  Report Type: Spontaneous
  Country: FR (occurrence: FR)
  Receive Date: 20140107
  Receipt Date: 20140107
  Transmission Date: 20141002
  Serious: Yes (Death)
  Sender: FDA-Public Use
  Company Number: FR-GLAXOSMITHKLINE-B0956380A

PATIENT
  Age: 74 Year
  Sex: Female

DRUGS (11)
  1. ARIXTRA [Suspect]
     Indication: MYOCARDIAL INFARCTION
     Dosage: 2.5MG PER DAY
     Route: 058
     Dates: start: 20131015, end: 20131016
  2. BRILIQUE [Suspect]
     Indication: MYOCARDIAL INFARCTION
     Route: 048
     Dates: start: 20131016, end: 20131017
  3. KARDEGIC [Suspect]
     Indication: MYOCARDIAL INFARCTION
     Dosage: 125MG PER DAY
     Route: 042
     Dates: start: 20131015, end: 20131015
  4. KARDEGIC [Suspect]
     Indication: MYOCARDIAL INFARCTION
     Dosage: 75MG PER DAY
     Route: 048
     Dates: start: 20131016, end: 20131016
  5. FORTZAAR [Concomitant]
  6. CELIPROLOL [Concomitant]
  7. LEVOTHYROX [Concomitant]
  8. HAVLANE [Concomitant]
  9. FENOFIBRATE [Concomitant]
  10. HYPERIUM [Concomitant]
  11. DOLIPRANE [Concomitant]

REACTIONS (6)
  - Intracranial haematoma [Fatal]
  - Altered state of consciousness [Unknown]
  - Cerebral haemorrhage [Unknown]
  - Grand mal convulsion [Unknown]
  - Intracranial pressure increased [Unknown]
  - Hemiparesis [Unknown]
